FAERS Safety Report 6547419-0 (Version None)
Quarter: 2010Q1

REPORT INFORMATION
  Report Type: 
  Country: None (occurrence: None)
  Receive Date: 20100122
  Receipt Date: 20100114
  Transmission Date: 20100710
  Serious: Yes (Other)
  Sender: FDA-Public Use
  Company Number: PHHY2010BE02102

PATIENT
  Sex: Male

DRUGS (5)
  1. RASILEZ [Suspect]
     Indication: HYPERTENSION
     Dosage: 1/2 TABLETS
  2. RASILEZ [Suspect]
     Dosage: 150 MG, QD
  3. RASILEZ [Suspect]
     Dosage: 150 MG, BID
  4. DIOVAN [Suspect]
     Indication: HYPERTENSION
     Dosage: 160 MG
  5. DIURETICS [Concomitant]
     Dosage: UNK

REACTIONS (1)
  - BLOOD PRESSURE INCREASED [None]
